FAERS Safety Report 7708022-X (Version None)
Quarter: 2011Q3

REPORT INFORMATION
  Report Type: 
  Country: None (occurrence: None)
  Receive Date: 20110824
  Receipt Date: 20110815
  Transmission Date: 20111222
  Serious: Yes (Other)
  Sender: FDA-Public Use
  Company Number: US-ASTRAZENECA-2011SE48733

PATIENT
  Age: 69 Year
  Sex: Female

DRUGS (2)
  1. ARIMIDEX [Suspect]
     Dosage: DAILY
     Route: 048
     Dates: start: 20060801
  2. FASLODEX [Suspect]
     Indication: BREAST CANCER
     Route: 030
     Dates: start: 20110601

REACTIONS (5)
  - BONE NEOPLASM MALIGNANT [None]
  - LYMPHADENOPATHY [None]
  - METASTASES TO BONE [None]
  - SURGERY [None]
  - BREAST CANCER RECURRENT [None]
